FAERS Safety Report 10682114 (Version 1)
Quarter: 2014Q4

REPORT INFORMATION
  Report Type: Spontaneous
  Country: US (occurrence: None)
  Receive Date: 20141229
  Receipt Date: 20141229
  Transmission Date: 20150529
  Serious: No
  Sender: FDA-Public Use
  Company Number: None

PATIENT
  Age: 50 Year
  Sex: Female
  Weight: 76.2 kg

DRUGS (1)
  1. CIPRO [Suspect]
     Active Substance: CIPROFLOXACIN HYDROCHLORIDE
     Indication: URINARY TRACT INFECTION
     Route: 048
     Dates: start: 20141013, end: 20141018

REACTIONS (4)
  - Nausea [None]
  - Headache [None]
  - Myalgia [None]
  - Dizziness [None]

NARRATIVE: CASE EVENT DATE: 20141013
